FAERS Safety Report 6942219-1 (Version None)
Quarter: 2010Q3

REPORT INFORMATION
  Report Type: 
  Country: None (occurrence: None)
  Receive Date: 20100826
  Receipt Date: 20100818
  Transmission Date: 20110219
  Serious: Yes (Hospitalization, Other)
  Sender: FDA-Public Use
  Company Number: US-AMGEN-QUU394293

PATIENT
  Sex: Female
  Weight: 87 kg

DRUGS (6)
  1. NPLATE [Suspect]
     Indication: IDIOPATHIC THROMBOCYTOPENIC PURPURA
     Dates: start: 20091102, end: 20100301
  2. LISINOPRIL AND HYDROCHLOROTHIAZIDE [Concomitant]
     Route: 048
  3. NEXIUM [Concomitant]
     Route: 048
  4. IMMU-G [Concomitant]
     Route: 042
     Dates: start: 20100101, end: 20100201
  5. CALCIUM WITH VITAMIN D [Concomitant]
  6. FLOMAX [Concomitant]
     Route: 045

REACTIONS (6)
  - BACK PAIN [None]
  - CHEST PAIN [None]
  - CONTUSION [None]
  - PLATELET COUNT DECREASED [None]
  - SALIVA DISCOLOURATION [None]
  - THERAPEUTIC RESPONSE DECREASED [None]
